FAERS Safety Report 14120287 (Version 2)
Quarter: 2017Q4

REPORT INFORMATION
  Report Type: Spontaneous
  Country: JP (occurrence: JP)
  Receive Date: 20171024
  Receipt Date: 20171108
  Transmission Date: 20180321
  Serious: Yes (Hospitalization, Other)
  Sender: FDA-Public Use
  Company Number: JP-PFIZER INC-2017428802

PATIENT
  Age: 69 Year
  Sex: Female

DRUGS (2)
  1. TRAVATAN Z [Concomitant]
     Active Substance: TRAVOPROST
     Indication: GLAUCOMA
     Dosage: 1 DROP /DAY
     Route: 031
  2. CELECOX [Suspect]
     Active Substance: CELECOXIB
     Indication: PERIARTHRITIS
     Dosage: 100 MG, TWICE DAILY
     Route: 048
     Dates: start: 20170919, end: 20170925

REACTIONS (2)
  - Papule [Unknown]
  - Hypersensitivity [Unknown]

NARRATIVE: CASE EVENT DATE: 20170922
